FAERS Safety Report 9627840 (Version 2)
Quarter: 2013Q4

REPORT INFORMATION
  Report Type: Spontaneous
  Country: US (occurrence: US)
  Receive Date: 20131016
  Receipt Date: 20131024
  Transmission Date: 20140711
  Serious: Yes (Hospitalization)
  Sender: FDA-Public Use
  Company Number: US-GLAXOSMITHKLINE-A1043235A

PATIENT
  Age: 85 Year
  Sex: Female

DRUGS (17)
  1. ADVAIR [Suspect]
     Indication: ASTHMA
     Route: 065
     Dates: start: 20081217
  2. ALBUTEROL [Concomitant]
     Route: 055
  3. SPIRIVA [Concomitant]
  4. PRO-AIR [Concomitant]
  5. TYLENOL [Concomitant]
  6. CALCIUM CARBONATE [Concomitant]
  7. OXYGEN [Concomitant]
  8. FERROUS SULPHATE [Concomitant]
  9. DUONEB [Concomitant]
  10. LATANOPROST [Concomitant]
  11. RITALIN [Concomitant]
  12. METOPROLOL [Concomitant]
  13. VITAMIN [Concomitant]
  14. OMEPRAZOLE [Concomitant]
  15. POTASSIUM [Concomitant]
  16. AMBIEN [Concomitant]
  17. FUROSEMIDE [Concomitant]

REACTIONS (5)
  - Limb operation [Unknown]
  - Movement disorder [Unknown]
  - Dyspnoea [Unknown]
  - Heart rate increased [Unknown]
  - Back pain [Unknown]
